FAERS Safety Report 9115200 (Version 1)
Quarter: 2013Q1

REPORT INFORMATION
  Report Type: Spontaneous
  Country: AU (occurrence: None)
  Receive Date: 20130129
  Receipt Date: 20130129
  Transmission Date: 20140127
  Serious: No
  Sender: FDA-Public Use
  Company Number: 1570359

PATIENT
  Age: 49 Year
  Sex: Female

DRUGS (8)
  1. CARBOPLATIN [Suspect]
     Indication: BREAST CANCER
     Dosage: 870MG 1 WEEK, INTRAVENOUS
     Route: 042
     Dates: start: 20121205
  2. DOCETAXEL [Suspect]
     Indication: BREAST CANCER
     Route: 042
  3. PLACEBO [Suspect]
     Indication: BREAST CANCER
     Dosage: UNKNOWN, 1 WEEK INTRAVENOUS
     Route: 042
     Dates: start: 20121205
  4. (TRASTUZUMAB) [Concomitant]
  5. DEXAMETHASONE [Concomitant]
  6. (LORATADINE) [Concomitant]
  7. (TEMAZEPAM) [Concomitant]
  8. METOCLOPRAMIDE [Concomitant]

REACTIONS (9)
  - Syncope [None]
  - Dehydration [None]
  - Hypophagia [None]
  - Nausea [None]
  - Diarrhoea [None]
  - White blood cell count decreased [None]
  - Neutrophil count decreased [None]
  - Blood urea increased [None]
  - Blood potassium decreased [None]
